FAERS Safety Report 21339430 (Version 4)
Quarter: 2022Q4

REPORT INFORMATION
  Report Type: Spontaneous
  Country: JP (occurrence: JP)
  Receive Date: 20220915
  Receipt Date: 20221229
  Transmission Date: 20230112
  Serious: Yes (Death, Life-Threatening, Hospitalization, Other)
  Sender: FDA-Public Use
  Company Number: JP-MSD-2209JPN001442J

PATIENT
  Age: 8 Decade
  Sex: Female

DRUGS (1)
  1. KEYTRUDA [Suspect]
     Active Substance: PEMBROLIZUMAB
     Indication: Colon cancer
     Dosage: 200 MILLIGRAM, Q3W
     Route: 041
     Dates: start: 202204, end: 2022

REACTIONS (7)
  - Malignant neoplasm progression [Fatal]
  - Intestinal perforation [Fatal]
  - Cytomegalovirus infection [Unknown]
  - Ischaemic enteritis [Unknown]
  - Immune-mediated enterocolitis [Recovered/Resolved]
  - Adrenal insufficiency [Unknown]
  - Malaise [Recovering/Resolving]

NARRATIVE: CASE EVENT DATE: 20220101
